FAERS Safety Report 23666240 (Version 3)
Quarter: 2025Q1

REPORT INFORMATION
  Report Type: Spontaneous
  Country: JP (occurrence: JP)
  Receive Date: 20240324
  Receipt Date: 20250219
  Transmission Date: 20250409
  Serious: Yes (Hospitalization, Other)
  Sender: NEUROCRINE BIOSCIENCES
  Company Number: JP-NEUROCRINE BIOSCIENCES INC.-2024NBI02744

PATIENT
  Age: 9 Decade
  Sex: Female

DRUGS (3)
  1. VALBENAZINE [Suspect]
     Active Substance: VALBENAZINE
     Indication: Dyskinesia
     Route: 048
  2. VALBENAZINE [Suspect]
     Active Substance: VALBENAZINE
     Route: 048
  3. VALBENAZINE [Suspect]
     Active Substance: VALBENAZINE
     Route: 048

REACTIONS (4)
  - Depression [Not Recovered/Not Resolved]
  - Depression [Recovering/Resolving]
  - Depressed mood [Recovering/Resolving]
  - Cognitive disorder [Unknown]
